FAERS Safety Report 5331850-5 (Version None)
Quarter: 2007Q2

REPORT INFORMATION
  Report Type: 
  Country: None (occurrence: None)
  Receive Date: 20070306
  Receipt Date: 20051130
  Transmission Date: 20071010
  Serious: Yes (Other)
  Sender: FDA-Public Use
  Company Number: A03200503946

PATIENT
  Sex: Female

DRUGS (1)
  1. PLAVIX [Suspect]
     Indication: STENT PLACEMENT
     Dosage: NI UNK ORAL
     Route: 048
     Dates: start: 20050201

REACTIONS (1)
  - CORONARY ARTERY OCCLUSION [None]
